FAERS Safety Report 21331881 (Version 3)
Quarter: 2022Q4

REPORT INFORMATION
  Report Type: Report from Study
  Country: IT (occurrence: IT)
  Receive Date: 20220914
  Receipt Date: 20221013
  Transmission Date: 20230113
  Serious: Yes (Hospitalization, Other)
  Sender: FDA-Public Use
  Company Number: None

PATIENT
  Age: 9 Year
  Sex: Female
  Weight: 40 kg

DRUGS (3)
  1. VINCRISTINE [Suspect]
     Active Substance: VINCRISTINE
     Indication: Acute lymphocytic leukaemia
     Dosage: 1.85 MG / DAY ON 11/07/2022 AND 18/07/2022,VINCRISTINA TEVA ITALIA, DURATION : 7 DAYS
     Dates: start: 20220711, end: 20220718
  2. ONCASPAR [Suspect]
     Active Substance: PEGASPARGASE
     Indication: Acute lymphocytic leukaemia
     Dosage: 3100 U/I
     Dates: start: 20220711, end: 20220711
  3. DECADRON [Concomitant]
     Active Substance: DEXAMETHASONE
     Indication: Acute lymphocytic leukaemia
     Dosage: 13 MG / DAY FROM 04/07/2022 TO 24/07/2022. 6.5 MG / DAY FROM 07/25/2022 TO 07/27/2022. 3.25 MG / DAY
     Dates: start: 20220704, end: 20220804

REACTIONS (4)
  - Febrile neutropenia [Recovered/Resolved]
  - Hypogammaglobulinaemia [Not Recovered/Not Resolved]
  - Pancytopenia [Not Recovered/Not Resolved]
  - Neuropathy peripheral [Recovering/Resolving]

NARRATIVE: CASE EVENT DATE: 20220729
